FAERS Safety Report 7200091-9 (Version None)
Quarter: 2010Q4

REPORT INFORMATION
  Report Type: 
  Country: None (occurrence: None)
  Receive Date: 20101228
  Receipt Date: 20101216
  Transmission Date: 20110411
  Serious: Yes (Death)
  Sender: FDA-Public Use
  Company Number: US-SANOFI-AVENTIS-2010SA018343

PATIENT
  Age: 37 Year
  Sex: Male
  Weight: 82 kg

DRUGS (10)
  1. AMBIEN [Suspect]
     Route: 048
     Dates: end: 20080320
  2. AMBIEN [Suspect]
     Route: 048
  3. ZOLPIDEM [Suspect]
     Route: 065
     Dates: start: 20070501
  4. ZOLPIDEM [Suspect]
     Route: 065
     Dates: start: 20071201, end: 20080320
  5. ETHANOL [Suspect]
     Route: 065
     Dates: start: 20080301
  6. WELLBUTRIN SR [Concomitant]
     Indication: ANXIETY
  7. WELLBUTRIN SR [Concomitant]
     Indication: DEPRESSION
  8. ENALAPRIL MALEATE [Concomitant]
  9. ZOCOR [Concomitant]
  10. HYDROCHLOROTHIAZIDE [Concomitant]

REACTIONS (5)
  - ABNORMAL BEHAVIOUR [None]
  - ASPHYXIA [None]
  - COMPLETED SUICIDE [None]
  - EATING DISORDER [None]
  - SOMNAMBULISM [None]
